FAERS Safety Report 6644260-5 (Version None)
Quarter: 2010Q1

REPORT INFORMATION
  Report Type: 
  Country: None (occurrence: None)
  Receive Date: 20100317
  Receipt Date: 20100308
  Transmission Date: 20100710
  Serious: Yes (Other)
  Sender: FDA-Public Use
  Company Number: 1000012502

PATIENT
  Age: 15 Year
  Sex: Male

DRUGS (4)
  1. ESCITALOPRAM [Suspect]
     Indication: ANXIETY
     Dosage: 10 MG, ORAL
     Route: 048
     Dates: start: 20100101, end: 20100101
  2. CLORAZEPATE DIPOTASSIUM [Concomitant]
  3. RISPERDAL [Concomitant]
  4. TOPIRAMATE [Concomitant]

REACTIONS (2)
  - HYPOMANIA [None]
  - OFF LABEL USE [None]
